FAERS Safety Report 14457663 (Version 1)
Quarter: 2018Q1

REPORT INFORMATION
  Report Type: Report from Study
  Country: CA (occurrence: CA)
  Receive Date: 20180130
  Receipt Date: 20180130
  Transmission Date: 20180509
  Serious: Yes (Other)
  Sender: FDA-Public Use
  Company Number: CA-JNJFOC-20180132868

PATIENT
  Age: 14 Year
  Sex: Female
  Weight: 70 kg

DRUGS (1)
  1. REMICADE [Suspect]
     Active Substance: INFLIXIMAB
     Indication: CROHN^S DISEASE
     Dosage: STRENGTH = 100 MG
     Route: 042
     Dates: start: 20121107

REACTIONS (4)
  - Off label use [Unknown]
  - Tonsillectomy [Recovering/Resolving]
  - Product use issue [Unknown]
  - Post procedural complication [Recovering/Resolving]

NARRATIVE: CASE EVENT DATE: 20121107
